FAERS Safety Report 6356293-7 (Version None)
Quarter: 2009Q3

REPORT INFORMATION
  Report Type: 
  Country: None (occurrence: None)
  Receive Date: 20090915
  Receipt Date: 20090807
  Transmission Date: 20100115
  Serious: Yes (Disabling)
  Sender: FDA-Public Use
  Company Number: MX-ASTRAZENECA-2009SE12666

PATIENT
  Age: 45 Year
  Sex: Female

DRUGS (4)
  1. SEROQUEL XR [Suspect]
     Indication: BIPOLAR DISORDER
     Route: 048
     Dates: start: 20080201, end: 20090701
  2. SEROQUEL XR [Interacting]
     Route: 048
     Dates: start: 20090701
  3. VALPROATE SODIUM [Interacting]
     Indication: BIPOLAR DISORDER
     Dates: start: 20080201, end: 20090701
  4. TIAMIZOL [Concomitant]

REACTIONS (4)
  - DRUG INTERACTION [None]
  - DYSARTHRIA [None]
  - HYPERTHYROIDISM [None]
  - SEDATION [None]
